FAERS Safety Report 4277935-6 (Version None)
Quarter: 2004Q1

REPORT INFORMATION
  Report Type: 
  Country: None (occurrence: None)
  Receive Date: 20040122
  Receipt Date: 20040122
  Transmission Date: 20041129
  Serious: Yes (Other)
  Sender: FDA-Public Use
  Company Number: None

PATIENT
  Age: 26 Year
  Sex: Male
  Weight: 141.6 kg

DRUGS (1)
  1. GEODON [Suspect]
     Indication: PSYCHOTIC DISORDER
     Dosage: 10 MG X 1   IM
     Route: 030
     Dates: start: 20040103

REACTIONS (3)
  - BODY TEMPERATURE INCREASED [None]
  - RASH ERYTHEMATOUS [None]
  - VIRAL INFECTION [None]
